FAERS Safety Report 6647370-1 (Version None)
Quarter: 2010Q1

REPORT INFORMATION
  Report Type: 
  Country: None (occurrence: None)
  Receive Date: 20100322
  Receipt Date: 20100322
  Transmission Date: 20100710
  Serious: Yes (Life-Threatening, Disabling, Other)
  Sender: FDA-Public Use
  Company Number: None

PATIENT
  Age: 39 Year
  Sex: Female
  Weight: 51.7101 kg

DRUGS (2)
  1. LATISSE [Suspect]
     Indication: MADAROSIS
     Dosage: 1 DROP EVERY NITE OPTHALMIC
     Route: 047
     Dates: start: 20091210, end: 20100320
  2. LATISSE [Suspect]

REACTIONS (8)
  - DIPLOPIA [None]
  - EYE PAIN [None]
  - INTRAOCULAR PRESSURE INCREASED [None]
  - MYDRIASIS [None]
  - NERVE INJURY [None]
  - RETINAL DETACHMENT [None]
  - VISION BLURRED [None]
  - VISUAL ACUITY REDUCED [None]
